FAERS Safety Report 5403795-3 (Version None)
Quarter: 2007Q3

REPORT INFORMATION
  Report Type: 
  Country: None (occurrence: None)
  Receive Date: 20070731
  Receipt Date: 20070731
  Transmission Date: 20080115
  Serious: Yes (Other)
  Sender: FDA-Public Use
  Company Number: None

PATIENT
  Age: 54 Year
  Sex: Male
  Weight: 27.2158 kg

DRUGS (1)
  1. TIGECYCLINE [Suspect]
     Indication: WOUND INFECTION
     Dosage: 50MG Q 12HR
     Dates: start: 20070507, end: 20070512

REACTIONS (2)
  - CONFUSIONAL STATE [None]
  - PANCREATITIS ACUTE [None]
